FAERS Safety Report 18495513 (Version 3)
Quarter: 2020Q4

REPORT INFORMATION
  Report Type: Spontaneous
  Country: US (occurrence: US)
  Receive Date: 20201112
  Receipt Date: 20201130
  Transmission Date: 20210114
  Serious: Yes (Other)
  Sender: FDA-Public Use
  Company Number: US-009507513-2011USA007671

PATIENT
  Age: 36 Year
  Sex: Female

DRUGS (3)
  1. NEXPLANON [Suspect]
     Active Substance: ETONOGESTREL
     Dosage: 1 ROD, FOR 3 YEARS
     Route: 059
     Dates: start: 20201106, end: 20201106
  2. NEXPLANON [Suspect]
     Active Substance: ETONOGESTREL
     Dosage: 1 ROD, FOR 3 YEARS
     Route: 059
     Dates: end: 20201106
  3. NEXPLANON [Suspect]
     Active Substance: ETONOGESTREL
     Dosage: 1 IMPLANT IN LEFT UPPER ARM,OVER THE TRICEPS MUSCLE (APPROXIMATELY 10 CENTIMEMETER (CM) FROM THE MED
     Route: 059
     Dates: start: 20201106

REACTIONS (3)
  - No adverse event [Unknown]
  - Device dislocation [Not Recovered/Not Resolved]
  - Device expulsion [Recovered/Resolved]

NARRATIVE: CASE EVENT DATE: 20201106
